FAERS Safety Report 8617407-9 (Version None)
Quarter: 2012Q3

REPORT INFORMATION
  Report Type: 
  Country: None (occurrence: None)
  Receive Date: 20120823
  Receipt Date: 20120815
  Transmission Date: 20120928
  Serious: Yes (Hospitalization, Other)
  Sender: FDA-Public Use
  Company Number: US-009507513-1202USA03894

PATIENT

DRUGS (9)
  1. FOSAMAX [Suspect]
     Dosage: UNK
     Route: 048
     Dates: start: 19950101
  2. TAMOXIFEN CITRATE [Concomitant]
     Indication: BREAST CANCER
     Dosage: TOOK AFTER MASTECTOMY
     Dates: start: 19880101, end: 19950101
  3. FOSAMAX [Suspect]
     Dosage: 70 MG, UNK
     Route: 048
     Dates: start: 20011002, end: 20080301
  4. FOSAMAX PLUS D [Suspect]
     Dosage: UNK
     Route: 048
     Dates: start: 20000101
  5. FOSAMAX [Suspect]
     Dosage: 10 MG, UNK
     Route: 048
     Dates: start: 19990206, end: 20010706
  6. FOSAMAX [Suspect]
     Dosage: 70 MG, UNK
     Route: 048
     Dates: start: 20081201
  7. ALENDRONATE SODIUM [Suspect]
     Dosage: 70 MG, UNK
     Dates: start: 20090209, end: 20100301
  8. ALENDRONATE SODIUM [Suspect]
     Indication: OSTEOPOROSIS
     Dosage: 70 MG, UNK
     Route: 048
     Dates: start: 20080301, end: 20080101
  9. NICODERM [Concomitant]

REACTIONS (34)
  - STRESS FRACTURE [None]
  - BREAST DISORDER [None]
  - RHEUMATOID ARTHRITIS [None]
  - TREMOR [None]
  - GASTROOESOPHAGEAL REFLUX DISEASE [None]
  - ACUTE RESPIRATORY DISTRESS SYNDROME [None]
  - HAEMORRHAGIC ANAEMIA [None]
  - INSOMNIA [None]
  - ENTEROVESICAL FISTULA [None]
  - ANXIETY [None]
  - FALL [None]
  - VITAMIN D DEFICIENCY [None]
  - FEMUR FRACTURE [None]
  - DEPRESSION [None]
  - PAIN [None]
  - EMPHYSEMA [None]
  - BUNION [None]
  - FOOT DEFORMITY [None]
  - JOINT INJURY [None]
  - ANAEMIA [None]
  - WEIGHT DECREASED [None]
  - MYALGIA [None]
  - OSTEOARTHRITIS [None]
  - LOW TURNOVER OSTEOPATHY [None]
  - CHRONIC OBSTRUCTIVE PULMONARY DISEASE [None]
  - WHITE BLOOD CELL COUNT INCREASED [None]
  - BRONCHITIS [None]
  - MEDICAL DEVICE DISCOMFORT [None]
  - POLYP COLORECTAL [None]
  - NASAL SEPTUM DEVIATION [None]
  - NOCTURIA [None]
  - LUNG DISORDER [None]
  - INCISION SITE ERYTHEMA [None]
  - ABSCESS [None]
